FAERS Safety Report 10696252 (Version 4)
Quarter: 2015Q2

REPORT INFORMATION
  Report Type: Spontaneous
  Country: US (occurrence: US)
  Receive Date: 20150107
  Receipt Date: 20150408
  Transmission Date: 20150821
  Serious: No
  Sender: FDA-Public Use
  Company Number: US-PFIZER INC-2015004986

PATIENT
  Age: 65 Year
  Sex: Female
  Weight: 58.5 kg

DRUGS (5)
  1. LAMICTAL [Concomitant]
     Active Substance: LAMOTRIGINE
     Indication: BACK PAIN
     Dosage: 150 MG,1X/DAY AT BED TIME
  2. LAMICTAL [Concomitant]
     Active Substance: LAMOTRIGINE
     Indication: INSOMNIA
  3. CHANTIX [Suspect]
     Active Substance: VARENICLINE TARTRATE
     Indication: SMOKING CESSATION THERAPY
     Dosage: UNK, 2X/DAY
     Dates: start: 201405, end: 2014
  4. KLONOPIN [Suspect]
     Active Substance: CLONAZEPAM
     Indication: INSOMNIA
     Dosage: 2 MG, 1X/DAY AT BED TIME
  5. CHANTIX [Suspect]
     Active Substance: VARENICLINE TARTRATE
     Dosage: 1 MG, 2X/DAY
     Dates: start: 20150204

REACTIONS (5)
  - Bronchitis [Recovered/Resolved]
  - Anxiety [Not Recovered/Not Resolved]
  - Abnormal dreams [Recovered/Resolved]
  - Depression [Recovered/Resolved]
  - Pruritus [Unknown]

NARRATIVE: CASE EVENT DATE: 2014
